FAERS Safety Report 24007574 (Version 1)
Quarter: 2024Q2

REPORT INFORMATION
  Report Type: Spontaneous
  Country: US (occurrence: US)
  Receive Date: 20240625
  Receipt Date: 20240625
  Transmission Date: 20240716
  Serious: No
  Sender: FDA-Public Use
  Company Number: US-JNJFOC-20240639274

PATIENT
  Age: 23 Year
  Sex: Male
  Weight: 47.216 kg

DRUGS (3)
  1. INVEGA SUSTENNA [Suspect]
     Active Substance: PALIPERIDONE PALMITATE
     Indication: Bipolar I disorder
     Route: 030
     Dates: start: 20240530
  2. INVEGA SUSTENNA [Suspect]
     Active Substance: PALIPERIDONE PALMITATE
     Route: 030
  3. INVEGA SUSTENNA [Suspect]
     Active Substance: PALIPERIDONE PALMITATE
     Route: 030

REACTIONS (11)
  - Sedation [Unknown]
  - Somnolence [Unknown]
  - Muscle twitching [Unknown]
  - Rash [Unknown]
  - Dysstasia [Unknown]
  - Irritability [Unknown]
  - Hypersomnia [Unknown]
  - Decreased appetite [Unknown]
  - Heat stroke [Unknown]
  - Off label use [Unknown]
  - Off label use [Unknown]
